FAERS Safety Report 6781001-5 (Version None)
Quarter: 2010Q2

REPORT INFORMATION
  Report Type: 
  Country: None (occurrence: None)
  Receive Date: 20100617
  Receipt Date: 20100617
  Transmission Date: 20101027
  Serious: Yes (Hospitalization)
  Sender: FDA-Public Use
  Company Number: None

PATIENT
  Age: 28 Year
  Sex: Male

DRUGS (14)
  1. LORAZEPAM [Suspect]
     Indication: METASTASIS
     Dates: start: 20100101, end: 20100113
  2. LORAZEPAM [Suspect]
     Indication: TESTICULAR GERM CELL CANCER
     Dates: start: 20100101, end: 20100113
  3. IFOSFAMIDE [Suspect]
  4. APAP TAB [Concomitant]
  5. OMEPRAZOLE [Concomitant]
  6. DOCUSATE SODIUM [Concomitant]
  7. PROCHLOROPERAZINE [Concomitant]
  8. OYCODONE [Concomitant]
  9. POLYETHYLENE GLYCOL [Concomitant]
  10. MAGNESIUM OXIDE [Concomitant]
  11. TRAZODONE HCL [Concomitant]
  12. FILGRASTATIN [Concomitant]
  13. COTRIM [Concomitant]
  14. ONDANSETRON [Concomitant]

REACTIONS (4)
  - COMA [None]
  - CONVULSION [None]
  - ENCEPHALOPATHY [None]
  - HALLUCINATIONS, MIXED [None]
